FAERS Safety Report 5538262-X (Version None)
Quarter: 2007Q4

REPORT INFORMATION
  Report Type: 
  Country: None (occurrence: None)
  Receive Date: 20071204
  Receipt Date: 20071116
  Transmission Date: 20080405
  Serious: Yes (Hospitalization)
  Sender: FDA-Public Use
  Company Number: 2007S1012027

PATIENT
  Age: 64 Year
  Sex: Female

DRUGS (4)
  1. WARFARIN SODIUM [Suspect]
     Indication: COAGULOPATHY
     Dosage: 5 MG; DAILY
  2. ASPIRIN                                   (ACETYLSALICYLATE LYSINE) [Concomitant]
  3. WARFARIN SODIUM [Concomitant]
  4. ENOXAPARIN SODIUM [Concomitant]

REACTIONS (8)
  - COAGULATION FACTOR X LEVEL DECREASED [None]
  - GRAFT THROMBOSIS [None]
  - ILIAC ARTERY THROMBOSIS [None]
  - INTERNATIONAL NORMALISED RATIO DECREASED [None]
  - INTERNATIONAL NORMALISED RATIO INCREASED [None]
  - PROTEIN C DECREASED [None]
  - PROTEIN S DEFICIENCY [None]
  - THROMBOSIS [None]
